FAERS Safety Report 13800926 (Version 1)
Quarter: 2017Q3

REPORT INFORMATION
  Report Type: Spontaneous
  Country: IE (occurrence: GB)
  Receive Date: 20170727
  Receipt Date: 20170727
  Transmission Date: 20171127
  Serious: Yes (Hospitalization)
  Sender: FDA-Public Use
  Company Number: IE-PFIZER INC-1450939

PATIENT
  Age: 66 Year
  Sex: Male
  Weight: 92.45 kg

DRUGS (12)
  1. ENSURE /06184901/ [Concomitant]
     Indication: NUTRITIONAL SUPPLEMENTATION
     Dosage: UNK
     Route: 048
     Dates: start: 20120726
  2. ACICLOVIR [Concomitant]
     Active Substance: ACYCLOVIR
     Indication: PROPHYLAXIS
     Dosage: UNK
     Route: 048
     Dates: end: 20120815
  3. CHLORHEXIDINE GLUCONATE. [Concomitant]
     Active Substance: CHLORHEXIDINE GLUCONATE
     Indication: PROPHYLAXIS
     Dosage: UNK
     Route: 050
     Dates: start: 20120710, end: 20120815
  4. ITRACONAZOLE. [Concomitant]
     Active Substance: ITRACONAZOLE
     Indication: PROPHYLAXIS
     Dosage: UNK
     Route: 048
     Dates: start: 20120625, end: 20120815
  5. CYTARABINE. [Suspect]
     Active Substance: CYTARABINE
     Dosage: 2170 MG, UNK
     Route: 041
     Dates: start: 20120711, end: 20120715
  6. CALCICHEW [Concomitant]
     Active Substance: CALCIUM CARBONATE
     Indication: BLOOD CALCIUM DECREASED
     Dosage: UNK
     Route: 048
     Dates: start: 20120725, end: 20120815
  7. POTASSIUM CHLORIDE. [Concomitant]
     Active Substance: POTASSIUM CHLORIDE
     Indication: BLOOD POTASSIUM DECREASED
     Dosage: UNK
     Route: 048
     Dates: start: 20120722, end: 20120730
  8. OMEPRAZOLE. [Concomitant]
     Active Substance: OMEPRAZOLE
     Indication: PROPHYLAXIS
     Dosage: UNK
     Route: 048
  9. CYTARABINE. [Suspect]
     Active Substance: CYTARABINE
     Indication: ACUTE MYELOID LEUKAEMIA
     Dosage: 2200 MG, UNK
     Route: 041
     Dates: start: 20120528, end: 20120601
  10. THIAMINE. [Concomitant]
     Active Substance: THIAMINE
     Indication: PROPHYLAXIS
     Dosage: UNK
     Route: 048
     Dates: start: 20120726, end: 20120805
  11. CIPROFLOXACIN. [Concomitant]
     Active Substance: CIPROFLOXACIN
     Indication: PROPHYLAXIS
     Dosage: UNK
     Route: 048
     Dates: start: 20120625, end: 20120815
  12. PARACETAMOL [Concomitant]
     Active Substance: ACETAMINOPHEN
     Indication: NEUTROPENIC SEPSIS
     Dosage: UNK
     Route: 048
     Dates: start: 20120722, end: 20120731

REACTIONS (2)
  - Neutropenic sepsis [Recovered/Resolved]
  - Vitreous haemorrhage [Recovered/Resolved]

NARRATIVE: CASE EVENT DATE: 20120722
